FAERS Safety Report 9922100 (Version 2)
Quarter: 2018Q3

REPORT INFORMATION
  Report Type: Spontaneous
  Country: US (occurrence: US)
  Receive Date: 20140225
  Receipt Date: 20180906
  Transmission Date: 20181010
  Serious: Yes (Other)
  Sender: FDA-Public Use
  Company Number: US-009507513-1402USA008263

PATIENT
  Age: 22 Year
  Sex: Female

DRUGS (3)
  1. CARBAMAZEPINE. [Suspect]
     Active Substance: CARBAMAZEPINE
     Dosage: 400 MG, TID
  2. CARBAMAZEPINE. [Suspect]
     Active Substance: CARBAMAZEPINE
     Indication: SEIZURE
     Dosage: 200 MG, QID, FOR NINE YEARS;
  3. IMPLANON [Suspect]
     Active Substance: ETONOGESTREL
     Indication: CONTRACEPTION
     Dosage: UNK

REACTIONS (2)
  - Pregnancy with implant contraceptive [Recovered/Resolved]
  - Unintended pregnancy [Recovered/Resolved]
